FAERS Safety Report 13153548 (Version 1)
Quarter: 2017Q1

REPORT INFORMATION
  Report Type: Report from Study
  Country: US (occurrence: US)
  Receive Date: 20170126
  Receipt Date: 20170126
  Transmission Date: 20170428
  Serious: Yes (Hospitalization)
  Sender: FDA-Public Use
  Company Number: PHHO2017US001454

PATIENT
  Age: 75 Year
  Sex: Male
  Weight: 108.39 kg

DRUGS (11)
  1. HYDRALAZINE HYDROCHLORIDE,HYDROCHLOROTHIAZIDE [Suspect]
     Active Substance: HYDRALAZINE HYDROCHLORIDE\HYDROCHLOROTHIAZIDE
     Indication: PRODUCT USED FOR UNKNOWN INDICATION
     Dosage: 25 MG, TID
     Route: 065
     Dates: start: 20170104
  2. POTASSIUM CHLORIDE. [Concomitant]
     Active Substance: POTASSIUM CHLORIDE
     Indication: CARDIAC FAILURE CONGESTIVE
     Dosage: 20 MEQ, QD
     Route: 065
     Dates: start: 201606
  3. ENTRESTO [Suspect]
     Active Substance: SACUBITRIL\VALSARTAN
     Indication: CARDIAC FAILURE
     Dosage: 1 DF, BID
     Route: 048
     Dates: start: 20161219, end: 20170118
  4. ALBUTEROL. [Concomitant]
     Active Substance: ALBUTEROL
     Indication: DYSPNOEA
     Dosage: 90 UG, PRN
     Route: 065
     Dates: start: 201606
  5. COENZYME Q10 [Concomitant]
     Active Substance: UBIDECARENONE
     Indication: HYPERLIPIDAEMIA
     Dosage: 100 MG, QD
     Route: 065
     Dates: start: 20161114
  6. DIGOXIN. [Concomitant]
     Active Substance: DIGOXIN
     Indication: HYPERTENSION
     Dosage: 125 MG, QD
     Route: 065
     Dates: start: 20161120
  7. SPIRONOLACTONE. [Concomitant]
     Active Substance: SPIRONOLACTONE
     Indication: CARDIOMYOPATHY
     Dosage: 25 MG, QD
     Route: 065
     Dates: start: 201610
  8. ASPIRIN. [Concomitant]
     Active Substance: ASPIRIN
     Indication: HYPERLIPIDAEMIA
     Dosage: 81 MG, QD
     Route: 065
     Dates: start: 201610
  9. FUROSEMIDE. [Concomitant]
     Active Substance: FUROSEMIDE
     Indication: CARDIAC FAILURE CONGESTIVE
     Dosage: 40 MG, BID
     Route: 065
     Dates: start: 201608
  10. CRESTOR [Concomitant]
     Active Substance: ROSUVASTATIN CALCIUM
     Indication: HYPERLIPIDAEMIA
     Dosage: 5 MG, QD
     Route: 065
     Dates: start: 20161114
  11. SYMBICORT [Concomitant]
     Active Substance: BUDESONIDE\FORMOTEROL FUMARATE DIHYDRATE
     Indication: DYSPNOEA
     Dosage: 160-4.5 MCG,PRN
     Route: 065
     Dates: start: 201606

REACTIONS (6)
  - Loss of consciousness [None]
  - Laceration [None]
  - Syncope [Not Recovered/Not Resolved]
  - Blood pressure increased [None]
  - Head injury [None]
  - Fall [None]

NARRATIVE: CASE EVENT DATE: 20170118
